FAERS Safety Report 21287077 (Version 10)
Quarter: 2023Q1

REPORT INFORMATION
  Report Type: Report from Study
  Country: NL (occurrence: NL)
  Receive Date: 20220902
  Receipt Date: 20230324
  Transmission Date: 20230418
  Serious: Yes (Hospitalization)
  Sender: FDA-Public Use
  Company Number: NL-NOVARTISPH-NVSC2022NL192751

PATIENT
  Age: 46 Year
  Sex: Male
  Weight: 125.6 kg

DRUGS (8)
  1. ALPELISIB [Suspect]
     Active Substance: ALPELISIB
     Indication: PIK3CA related overgrowth spectrum
     Dosage: UNK
     Route: 048
     Dates: start: 20220630, end: 20220824
  2. ALPELISIB [Suspect]
     Active Substance: ALPELISIB
     Dosage: UNK
     Route: 048
     Dates: start: 20220906
  3. AUGMENTIN [Suspect]
     Active Substance: AMOXICILLIN\CLAVULANATE POTASSIUM
     Indication: Gastrointestinal infection
     Dosage: UNK
     Route: 065
     Dates: start: 1999
  4. AUGMENTIN [Suspect]
     Active Substance: AMOXICILLIN\CLAVULANATE POTASSIUM
     Indication: Erysipelas
  5. APIXABAN [Concomitant]
     Active Substance: APIXABAN
     Indication: Venous thrombosis
     Dosage: UNK
     Route: 065
     Dates: start: 1990
  6. VITAMIN D [Concomitant]
     Active Substance: VITAMIN D NOS
     Indication: Osteopenia
     Dosage: UNK
     Route: 065
     Dates: start: 2019
  7. MICONAZOLE NITRATE [Concomitant]
     Active Substance: MICONAZOLE NITRATE
     Indication: Eczema
     Dosage: UNK
     Route: 065
     Dates: start: 2012
  8. MICONAZOLE NITRATE [Concomitant]
     Active Substance: MICONAZOLE NITRATE
     Indication: Xerosis

REACTIONS (1)
  - Infection [Recovered/Resolved]

NARRATIVE: CASE EVENT DATE: 20220826
